FAERS Safety Report 8837880 (Version 1)
Quarter: 2012Q4

REPORT INFORMATION
  Report Type: 
  Country: US (occurrence: US)
  Receive Date: 20121012
  Receipt Date: 20121012
  Transmission Date: 20130627
  Serious: Yes (Life-Threatening, Hospitalization)
  Sender: FDA-Public Use
  Company Number: US-PFIZER INC-2012249138

PATIENT
  Age: 42 Year
  Sex: Female
  Weight: 95.24 kg

DRUGS (12)
  1. AZITHROMYCIN [Suspect]
     Dosage: 250 mg, UNK
  2. FUROSEMIDE [Suspect]
     Dosage: 20 mg, two tablets of 20 mg daily
     Route: 048
  3. FUROSEMIDE [Suspect]
     Dosage: UNK
  4. HYDROCORTISONE [Suspect]
     Dosage: UNK
  5. LORAZEPAM [Suspect]
     Dosage: 2 mg, UNK
  6. POTASSIUM CHLORIDE [Suspect]
     Dosage: UNK
  7. PROMETHAZINE HYDROCHLORIDE [Suspect]
     Dosage: 25 mg, UNK
  8. SEROQUEL [Suspect]
     Indication: BIPOLAR DISORDER
     Dosage: UNK, (daily or two times a day)
  9. PRILOSEC [Suspect]
     Dosage: 20 mg, two capsules of 20 mg daily
     Route: 048
  10. MECLIZINE [Suspect]
     Dosage: 25 mg, UNK
  11. HYDROCODONE [Suspect]
     Dosage: 5 mg, UNK
  12. TOPAMAX [Suspect]
     Indication: GRAND MAL CONVULSION
     Dosage: 25 mg, UNK

REACTIONS (3)
  - Overdose [Unknown]
  - Grand mal convulsion [Unknown]
  - Coma [Unknown]
